FAERS Safety Report 16467974 (Version 1)
Quarter: 2019Q2

REPORT INFORMATION
  Report Type: Spontaneous
  Country: US (occurrence: US)
  Receive Date: 20190513
  Receipt Date: 20190513
  Transmission Date: 20190711
  Serious: No
  Sender: FDA-Public Use
  Company Number: None

PATIENT
  Age: 46 Year
  Sex: Male

DRUGS (2)
  1. LISINOPRIL. [Concomitant]
     Active Substance: LISINOPRIL
  2. SUTENT [Suspect]
     Active Substance: SUNITINIB MALATE
     Indication: RENAL CELL CARCINOMA
     Dosage: ?          OTHER
     Route: 048
     Dates: start: 201904

REACTIONS (5)
  - Nausea [None]
  - Palmar-plantar erythrodysaesthesia syndrome [None]
  - Pain in jaw [None]
  - Diarrhoea [None]
  - Constipation [None]

NARRATIVE: CASE EVENT DATE: 20190422
